FAERS Safety Report 8155868-2 (Version None)
Quarter: 2012Q1

REPORT INFORMATION
  Report Type: 
  Country: None (occurrence: None)
  Receive Date: 20120222
  Receipt Date: 20120214
  Transmission Date: 20120608
  Serious: Yes (Other)
  Sender: FDA-Public Use
  Company Number: GB-COVIDIEN/TYCO HEALTHCARE/MALLINCKRODT-T201200581

PATIENT
  Sex: Male

DRUGS (2)
  1. ULTRA-TECHNEKOW FM [Suspect]
     Indication: VENTILATION/PERFUSION SCAN
     Dosage: 75 MBQ, SINGLE
     Route: 042
     Dates: start: 20021018, end: 20021018
  2. TECHNESCAN MAA [Suspect]
     Indication: VENTILATION/PERFUSION SCAN
     Dosage: UNK UNK, SINGLE
     Route: 042
     Dates: start: 20021018, end: 20021018

REACTIONS (1)
  - HEPATITIS B [None]
